FAERS Safety Report 24296127 (Version 1)
Quarter: 2024Q3

REPORT INFORMATION
  Report Type: Report from Study
  Country: US (occurrence: None)
  Receive Date: 20240909
  Receipt Date: 20240909
  Transmission Date: 20241016
  Serious: Yes (Other)
  Sender: ASTRAZENECA
  Company Number: 2024A201815

PATIENT
  Sex: Female
  Weight: 60.3 kg

DRUGS (1)
  1. LYNPARZA [Suspect]
     Active Substance: OLAPARIB
     Indication: Ovarian cancer
     Route: 048
     Dates: start: 20240509

REACTIONS (7)
  - Cataract [Unknown]
  - Anaemia [Unknown]
  - Arthralgia [Unknown]
  - Fatigue [Unknown]
  - Ageusia [Unknown]
  - Appetite disorder [Unknown]
  - Product dose omission issue [Unknown]
